FAERS Safety Report 7580035 (Version 2)
Quarter: 2012Q4

REPORT INFORMATION
  Report Type: 
  Country: FR (occurrence: FR)
  Receive Date: 20100910
  Receipt Date: 20121120
  Transmission Date: 20130627
  Serious: Yes (Hospitalization)
  Sender: FDA-Public Use
  Company Number: FR-PFIZER INC-2010109249

PATIENT
  Age: 59 Year
  Sex: Female

DRUGS (9)
  1. FARMORUBICINE [Suspect]
     Indication: CARCINOMA HEPATOCELLULAR
     Dosage: 100 mg, single
     Route: 025
     Dates: start: 20100526, end: 20100526
  2. AVLOCARDYL [Suspect]
     Dosage: 160 mg, 1x/day
     Route: 048
     Dates: end: 20100529
  3. ULCAR [Concomitant]
     Indication: PORTAL HYPERTENSION
  4. ULCAR [Concomitant]
     Indication: ESOPHAGEAL VARICES IN CIRRHOSIS OF LIVER
  5. ALDACTONE [Concomitant]
  6. LASILIX [Concomitant]
  7. DIAMICRON [Concomitant]
  8. ACTOS [Concomitant]
  9. DIFFU K [Concomitant]

REACTIONS (1)
  - Torsade de pointes [Recovered/Resolved with Sequelae]
